FAERS Safety Report 8558632-5 (Version None)
Quarter: 2012Q3

REPORT INFORMATION
  Report Type: 
  Country: None (occurrence: None)
  Receive Date: 20120801
  Receipt Date: 20120725
  Transmission Date: 20120928
  Serious: Yes (Death)
  Sender: FDA-Public Use
  Company Number: US-ROCHE-1054429

PATIENT
  Sex: Male

DRUGS (1)
  1. ZELBORAF [Suspect]
     Indication: PRODUCT USED FOR UNKNOWN INDICATION

REACTIONS (7)
  - DEATH [None]
  - VISION BLURRED [None]
  - NAUSEA [None]
  - VOMITING [None]
  - RASH [None]
  - DECREASED APPETITE [None]
  - SWELLING [None]
